FAERS Safety Report 9535188 (Version 2)
Quarter: 2013Q3

REPORT INFORMATION
  Report Type: Spontaneous
  Country: US (occurrence: US)
  Receive Date: 20130918
  Receipt Date: 20130918
  Transmission Date: 20140515
  Serious: No
  Sender: FDA-Public Use
  Company Number: US-PURDUE-USA-2012-0091913

PATIENT
  Sex: Male
  Weight: 79.37 kg

DRUGS (1)
  1. INTERMEZZO [Suspect]
     Indication: INSOMNIA
     Dosage: 3 MG, HS
     Route: 060

REACTIONS (1)
  - Abnormal dreams [Recovered/Resolved]
